FAERS Safety Report 14789277 (Version 2)
Quarter: 2018Q2

REPORT INFORMATION
  Report Type: Spontaneous
  Country: PE (occurrence: PE)
  Receive Date: 20180423
  Receipt Date: 20180427
  Transmission Date: 20180711
  Serious: Yes (Other)
  Sender: FDA-Public Use
  Company Number: PHHY2018PE070215

PATIENT
  Age: 64 Year
  Sex: Female

DRUGS (3)
  1. VITAMIN D3 [Concomitant]
     Active Substance: CHOLECALCIFEROL
     Indication: PRODUCT USED FOR UNKNOWN INDICATION
     Dosage: UNK
     Route: 065
  2. ACLASTA [Suspect]
     Active Substance: ZOLEDRONIC ACID
     Indication: OSTEOPOROSIS
     Dosage: UNK
     Route: 065
     Dates: start: 20180402
  3. CALCIUM D [Concomitant]
     Active Substance: CALCIUM\VITAMIN D
     Indication: PRODUCT USED FOR UNKNOWN INDICATION
     Dosage: UNK
     Route: 065

REACTIONS (19)
  - Eye pain [Not Recovered/Not Resolved]
  - Lacrimation increased [Unknown]
  - Vitreous detachment [Unknown]
  - Pain in extremity [Unknown]
  - Balance disorder [Not Recovered/Not Resolved]
  - Vision blurred [Not Recovered/Not Resolved]
  - Retinal detachment [Unknown]
  - Myopia [Not Recovered/Not Resolved]
  - Decreased appetite [Unknown]
  - Ocular hyperaemia [Not Recovered/Not Resolved]
  - Eye burns [Unknown]
  - Vitreous degeneration [Unknown]
  - Headache [Not Recovered/Not Resolved]
  - Nausea [Unknown]
  - Eye movement disorder [Unknown]
  - Hypermetropia [Not Recovered/Not Resolved]
  - Pyrexia [Unknown]
  - Eye inflammation [Unknown]
  - Optic disc drusen [Unknown]
